FAERS Safety Report 8722383 (Version 2)
Quarter: 2012Q4

REPORT INFORMATION
  Report Type: 
  Country: ES (occurrence: ES)
  Receive Date: 20120814
  Receipt Date: 20121001
  Transmission Date: 20130627
  Serious: Yes (Other)
  Sender: FDA-Public Use
  Company Number: ES-PFIZER INC-2012195610

PATIENT
  Age: 31 Year
  Sex: Female

DRUGS (11)
  1. QUETIAPINE FUMARATE [Suspect]
     Dosage: 25 mg/day
     Dates: start: 201108, end: 2011
  2. QUETIAPINE FUMARATE [Interacting]
     Dosage: 100 mg/day
     Dates: start: 20110905, end: 201109
  3. QUETIAPINE FUMARATE [Interacting]
     Dosage: 300 mg, 1x/day
     Dates: start: 20110921, end: 2011
  4. QUETIAPINE FUMARATE [Interacting]
     Dosage: 100 mg/day
     Dates: start: 20111005
  5. METRONIDAZOLE [Interacting]
     Indication: ECZEMA
     Dosage: 250 mg/12 hours
     Dates: start: 20110928
  6. SERTRALINE [Concomitant]
     Dosage: 25 mg/day
  7. CLONAZEPAM [Concomitant]
     Dosage: 0.5 mg/day
  8. DIAZEPAM [Concomitant]
     Dosage: 10 mg/day
  9. OMEPRAZOLE [Concomitant]
     Dosage: 20 mg/day
  10. IBUPROFEN [Concomitant]
     Indication: STOMATITIS
     Dosage: 600 mg/8 hours
  11. PARACETAMOL [Concomitant]
     Indication: STOMATITIS
     Dosage: 1 g/8 hours

REACTIONS (3)
  - Drug interaction [Recovered/Resolved]
  - Parkinsonism [Recovered/Resolved]
  - Sedation [Unknown]
